FAERS Safety Report 7528721-2 (Version None)
Quarter: 2011Q2

REPORT INFORMATION
  Report Type: 
  Country: None (occurrence: None)
  Receive Date: 20110607
  Receipt Date: 20110523
  Transmission Date: 20111010
  Serious: No
  Sender: FDA-Public Use
  Company Number: US-B.I. PHARMACEUTICALS,INC./RIDGEFIELD-2011-BP-08260BP

PATIENT
  Sex: Female

DRUGS (6)
  1. LIPITOR [Concomitant]
     Indication: BLOOD CHOLESTEROL INCREASED
     Dates: start: 20000101
  2. DIOVAN [Concomitant]
     Indication: HYPERTENSION
     Dosage: 640 MG
     Dates: start: 20110401
  3. PRADAXA [Suspect]
     Indication: ATRIAL FIBRILLATION
     Dosage: 300 MG
     Route: 048
     Dates: start: 20101223
  4. AMIODARONE HCL [Suspect]
     Indication: ATRIAL FIBRILLATION
     Dates: start: 20110201
  5. ZETIA [Concomitant]
     Indication: BLOOD CHOLESTEROL INCREASED
     Dates: start: 20020101
  6. SOTALOL HCL [Concomitant]
     Indication: ATRIAL FIBRILLATION
     Route: 048
     Dates: start: 20060101

REACTIONS (8)
  - COAGULATION TIME SHORTENED [None]
  - BLOOD PRESSURE INCREASED [None]
  - HYPOAESTHESIA [None]
  - CONTUSION [None]
  - DIZZINESS [None]
  - CHEST DISCOMFORT [None]
  - SWELLING FACE [None]
  - DYSPNOEA [None]
